FAERS Safety Report 13082267 (Version 2)
Quarter: 2017Q1

REPORT INFORMATION
  Report Type: Spontaneous
  Country: US (occurrence: US)
  Receive Date: 20170103
  Receipt Date: 20170216
  Transmission Date: 20170428
  Serious: Yes (Death, Other)
  Sender: FDA-Public Use
  Company Number: US-INCYTE CORPORATION-2016IN008425

PATIENT
  Age: 71 Year
  Sex: Male
  Weight: 85.5 kg

DRUGS (2)
  1. JAKAFI [Suspect]
     Active Substance: RUXOLITINIB
     Indication: MYELOFIBROSIS
     Dosage: 25 MG, BID
     Route: 048
     Dates: start: 20150402, end: 20161113
  2. HYDROXYUREA. [Concomitant]
     Active Substance: HYDROXYUREA
     Indication: PRODUCT USED FOR UNKNOWN INDICATION
     Dosage: 1000 MG, BID
     Dates: start: 20160918, end: 20161113

REACTIONS (6)
  - White blood cell count abnormal [Not Recovered/Not Resolved]
  - Thrombocytopenia [Not Recovered/Not Resolved]
  - Platelet count decreased [Not Recovered/Not Resolved]
  - Cerebral haemorrhage [Fatal]
  - Myelofibrosis [Not Recovered/Not Resolved]
  - Spontaneous haematoma [Not Recovered/Not Resolved]

NARRATIVE: CASE EVENT DATE: 20161113
